FAERS Safety Report 10239240 (Version 1)
Quarter: 2014Q2

REPORT INFORMATION
  Report Type: Report from Study
  Country: US (occurrence: US)
  Receive Date: 20140616
  Receipt Date: 20140616
  Transmission Date: 20141212
  Serious: Yes (Hospitalization)
  Sender: FDA-Public Use
  Company Number: US-BIOGENIDEC-2014BI057008

PATIENT
  Age: 0 Day
  Sex: Male

DRUGS (1)
  1. TYSABRI [Suspect]
     Indication: MATERNAL EXPOSURE TIMING UNSPECIFIED
     Route: 064
     Dates: start: 20080215

REACTIONS (5)
  - Gastrointestinal malformation [Recovered/Resolved]
  - Haematochezia [Recovered/Resolved]
  - Gastric disorder [Recovered/Resolved]
  - Low birth weight baby [Recovered/Resolved]
  - Heart rate decreased [Recovered/Resolved]
